FAERS Safety Report 21623386 (Version 2)
Quarter: 2022Q4

REPORT INFORMATION
  Report Type: Spontaneous
  Country: JP (occurrence: JP)
  Receive Date: 20221121
  Receipt Date: 20221205
  Transmission Date: 20230113
  Serious: Yes (Other)
  Sender: FDA-Public Use
  Company Number: JP-ferring-EVA202201368FERRINGPH

PATIENT

DRUGS (2)
  1. DESMOPRESSIN ACETATE [Suspect]
     Active Substance: DESMOPRESSIN ACETATE
     Indication: Inappropriate antidiuretic hormone secretion
     Dosage: 300 UG, DAILY (60 UG ONCE A DAY AND 120 UG TWICE A DAY)
     Route: 065
  2. FLUTICASONE PROPIONATE\FORMOTEROL FUMARATE [Concomitant]
     Active Substance: FLUTICASONE PROPIONATE\FORMOTEROL FUMARATE
     Indication: Asthma
     Dosage: UNK
     Route: 065

REACTIONS (7)
  - Cerebral infarction [Unknown]
  - Hyponatraemia [Recovered/Resolved]
  - Contraindicated product administered [Unknown]
  - Labelled drug-disease interaction medication error [Unknown]
  - Product use in unapproved indication [Unknown]
  - Drug monitoring procedure incorrectly performed [Unknown]
  - Product prescribing error [Unknown]
